FAERS Safety Report 9200974 (Version 2)
Quarter: 2013Q2

REPORT INFORMATION
  Report Type: Spontaneous
  Country: SE (occurrence: SE)
  Receive Date: 20130401
  Receipt Date: 20130418
  Transmission Date: 20140414
  Serious: Yes (Other)
  Sender: FDA-Public Use
  Company Number: SE-JNJFOC-20130204102

PATIENT
  Sex: Female

DRUGS (2)
  1. XARELTO [Suspect]
     Indication: CEREBROVASCULAR ACCIDENT PROPHYLAXIS
     Route: 048
     Dates: start: 20121018, end: 20121221
  2. XARELTO [Suspect]
     Indication: ATRIAL FIBRILLATION
     Route: 048
     Dates: start: 20121018, end: 20121221

REACTIONS (7)
  - Rectal haemorrhage [Recovering/Resolving]
  - Gastric disorder [Unknown]
  - Haematochezia [Recovering/Resolving]
  - Gastritis erosive [Unknown]
  - Dyspepsia [Unknown]
  - Fatigue [Unknown]
  - Faeces discoloured [Unknown]
